FAERS Safety Report 13477502 (Version 1)
Quarter: 2017Q2

REPORT INFORMATION
  Report Type: Spontaneous
  Country: GB (occurrence: GB)
  Receive Date: 20170425
  Receipt Date: 20170425
  Transmission Date: 20170830
  Serious: Yes (Disabling, Other)
  Sender: FDA-Public Use
  Company Number: GB-TEVA-760851ACC

PATIENT
  Age: 69 Year
  Sex: Female
  Weight: 56 kg

DRUGS (5)
  1. LEVOTHYROXINE. [Concomitant]
     Active Substance: LEVOTHYROXINE
  2. CALCICHEW D3 [Concomitant]
     Active Substance: CALCIUM\CHOLECALCIFEROL
  3. OMEPRAZOLE. [Concomitant]
     Active Substance: OMEPRAZOLE
  4. LOSARTAN. [Concomitant]
     Active Substance: LOSARTAN
  5. SIMVASTATIN. [Suspect]
     Active Substance: SIMVASTATIN
     Indication: HYPERTENSION
     Dosage: 10 MILLIGRAM DAILY;
     Route: 048

REACTIONS (3)
  - Fatigue [Recovered/Resolved]
  - Dyspnoea [Recovered/Resolved]
  - Hemiparesis [Recovered/Resolved]

NARRATIVE: CASE EVENT DATE: 2006
